FAERS Safety Report 6282985-4 (Version None)
Quarter: 2009Q3

REPORT INFORMATION
  Report Type: 
  Country: None (occurrence: None)
  Receive Date: 20090724
  Receipt Date: 20090709
  Transmission Date: 20100115
  Serious: Yes (Hospitalization, Other)
  Sender: FDA-Public Use
  Company Number: PHHY2009CL28460

PATIENT
  Age: 60 Year
  Sex: Female

DRUGS (2)
  1. TAREG [Suspect]
     Indication: HYPERTENSION
     Dosage: 1 TABLET/DAY
     Dates: start: 20050101
  2. ENALAPRIL MALEATE [Concomitant]
     Dosage: UNK

REACTIONS (1)
  - CORONARY ARTERY BYPASS [None]
